FAERS Safety Report 6025883-3 (Version None)
Quarter: 2008Q4

REPORT INFORMATION
  Report Type: 
  Country: None (occurrence: None)
  Receive Date: 20081223
  Receipt Date: 20081217
  Transmission Date: 20090506
  Serious: Yes (Other)
  Sender: FDA-Public Use
  Company Number: A0760533A

PATIENT
  Age: 51 Year
  Sex: Male

DRUGS (6)
  1. CAFFEINE CAPLET (CAFFEINE) [Suspect]
     Dosage: ORAL
     Route: 048
  2. PHENYTOIN [Concomitant]
  3. IRON SALT [Concomitant]
  4. LACT. ACID-PRODUCING ORGS [Concomitant]
  5. FISH OIL [Concomitant]
  6. MULTI-VITAMIN [Concomitant]

REACTIONS (5)
  - DRUG DEPENDENCE [None]
  - DRUG INEFFECTIVE [None]
  - EUPHORIC MOOD [None]
  - FATIGUE [None]
  - OVERDOSE [None]
